APPROVED DRUG PRODUCT: CIPRO HC
Active Ingredient: CIPROFLOXACIN HYDROCHLORIDE; HYDROCORTISONE
Strength: EQ 0.2% BASE;1%
Dosage Form/Route: SUSPENSION/DROPS;OTIC
Application: N020805 | Product #001 | TE Code: AB
Applicant: SANDOZ INC
Approved: Feb 10, 1998 | RLD: Yes | RS: Yes | Type: RX